FAERS Safety Report 7783508-0 (Version None)
Quarter: 2011Q3

REPORT INFORMATION
  Report Type: 
  Country: None (occurrence: None)
  Receive Date: 20110928
  Receipt Date: 20110921
  Transmission Date: 20111222
  Serious: Yes (Hospitalization)
  Sender: FDA-Public Use
  Company Number: US-B.I. PHARMACEUTICALS,INC./RIDGEFIELD-2011-BP-14634BP

PATIENT
  Sex: Female
  Weight: 79.83 kg

DRUGS (11)
  1. FUROSEMIDE [Concomitant]
     Dosage: 80 MG
     Route: 048
  2. LEVOTHYROXINE SODIUM [Concomitant]
     Dosage: 75 MCG
     Route: 048
  3. ALBUTEROL [Concomitant]
  4. SPIRONOLACTONE [Concomitant]
     Dosage: 25 MG
     Route: 048
  5. COZAAR [Concomitant]
     Dosage: 50 MG
     Route: 048
  6. CARVEDILOL [Concomitant]
     Dosage: 37.5 MG
     Route: 048
  7. ALPRAZOLAM [Concomitant]
     Dosage: 0.25 MG
     Route: 048
  8. PRADAXA [Suspect]
     Indication: ATRIAL FIBRILLATION
     Dosage: 300 MG
     Route: 048
     Dates: end: 20110527
  9. AMLODIPINE [Concomitant]
     Dosage: 10 MG
     Route: 048
  10. VITAMIN D [Concomitant]
     Dosage: 1000 U
     Route: 048
  11. ALLOPURINOL [Concomitant]
     Dosage: 100 MG
     Route: 048

REACTIONS (6)
  - HAEMOGLOBIN DECREASED [None]
  - ANAEMIA [None]
  - GASTRITIS EROSIVE [None]
  - HAEMORRHAGE [None]
  - HAEMATOCHEZIA [None]
  - GASTRITIS [None]
